FAERS Safety Report 19430951 (Version 5)
Quarter: 2021Q3

REPORT INFORMATION
  Report Type: Spontaneous
  Country: CN (occurrence: CN)
  Receive Date: 20210617
  Receipt Date: 20210722
  Transmission Date: 20211014
  Serious: Yes (Death, Hospitalization, Other)
  Sender: FDA-Public Use
  Company Number: CN-AMGEN-CHNSP2021090189

PATIENT
  Age: 66 Year
  Sex: Male

DRUGS (6)
  1. EZETIMIBE. [Concomitant]
     Active Substance: EZETIMIBE
     Dosage: 10 MILLIGRAM, QD
     Dates: start: 20210524, end: 20210606
  2. POTASSIUM CHLORIDE. [Concomitant]
     Active Substance: POTASSIUM CHLORIDE
     Dosage: 1 UNK, TID
     Dates: start: 20210526, end: 20210604
  3. REPATHA [Suspect]
     Active Substance: EVOLOCUMAB
     Indication: CARDIOVASCULAR EVENT PROPHYLAXIS
     Dosage: 140 MILLIGRAM, Q2WK
     Route: 058
     Dates: start: 20210524, end: 20210524
  4. TICAGRELOR. [Concomitant]
     Active Substance: TICAGRELOR
     Dosage: 90 MILLIGRAM, BID
  5. ATORVASTATIN [Concomitant]
     Active Substance: ATORVASTATIN
     Dosage: 10 MILLIGRAM, QD
     Dates: start: 20210524
  6. FENOFIBRATE. [Concomitant]
     Active Substance: FENOFIBRATE
     Dosage: 0.2 GRAM, QD
     Dates: start: 20210527, end: 20210604

REACTIONS (7)
  - Peripheral embolism [Unknown]
  - Diarrhoea [Unknown]
  - Death [Fatal]
  - Petechiae [Unknown]
  - Rhabdomyolysis [Unknown]
  - Pyrexia [Unknown]
  - Ecchymosis [Unknown]

NARRATIVE: CASE EVENT DATE: 20210606
